FAERS Safety Report 9275090 (Version 3)
Quarter: 2014Q2

REPORT INFORMATION
  Report Type: Spontaneous
  Country: US (occurrence: None)
  Receive Date: 20130430
  Receipt Date: 20140617
  Transmission Date: 20141212
  Serious: Yes (Life-Threatening, Hospitalization, Other)
  Sender: FDA-Public Use
  Company Number: ADR-2013-00726

PATIENT
  Age: 53 Year
  Sex: Female

DRUGS (3)
  1. BACLOFEN [Suspect]
     Indication: PAIN
  2. MORPHINE [Concomitant]
     Dosage: SEE B5
  3. MARCAINE [Suspect]
     Dosage: (10MG/ML, 4.675 MG.ML; SEE ALSO B5)

REACTIONS (12)
  - Dry mouth [None]
  - Feeling abnormal [None]
  - Hypoaesthesia oral [None]
  - Cyanosis [None]
  - Unresponsive to stimuli [None]
  - Device deployment issue [None]
  - Device leakage [None]
  - Overdose [None]
  - Loss of consciousness [None]
  - Incorrect route of drug administration [None]
  - Cardiac arrest [None]
  - Respiratory failure [None]
